FAERS Safety Report 8404175-9 (Version None)
Quarter: 2012Q2

REPORT INFORMATION
  Report Type: 
  Country: None (occurrence: None)
  Receive Date: 20120601
  Receipt Date: 20120523
  Transmission Date: 20120825
  Serious: Yes (Other)
  Sender: FDA-Public Use
  Company Number: CH-ASTRAZENECA-2012SE33442

PATIENT
  Age: 79 Year
  Sex: Male
  Weight: 69 kg

DRUGS (6)
  1. METOPROLOL SUCCINATE [Suspect]
     Indication: ESSENTIAL HYPERTENSION
     Route: 048
     Dates: start: 20120116
  2. ASPIRIN [Concomitant]
     Indication: MYOCARDIAL ISCHAEMIA
     Route: 048
  3. LISINOPRIL [Concomitant]
     Route: 048
  4. NEXIUM [Suspect]
     Route: 048
  5. GLIMEPIRID [Concomitant]
     Indication: TYPE 2 DIABETES MELLITUS
     Route: 048
  6. PLAVIX [Suspect]
     Indication: CORONARY ANGIOPLASTY
     Route: 048
     Dates: start: 20120116, end: 20120508

REACTIONS (2)
  - ABDOMINAL PAIN [None]
  - DIARRHOEA [None]
